FAERS Safety Report 8435342-6 (Version None)
Quarter: 2012Q2

REPORT INFORMATION
  Report Type: 
  Country: None (occurrence: None)
  Receive Date: 20120614
  Receipt Date: 20120612
  Transmission Date: 20120825
  Serious: No
  Sender: FDA-Public Use
  Company Number: US-TEVA-342827USA

PATIENT
  Sex: Male

DRUGS (1)
  1. PROAIR HFA [Suspect]
     Dosage: 2 INHALATIONS EVERY 2 HOURS AS NEEDED
     Dates: start: 20120604

REACTIONS (1)
  - DRUG INEFFECTIVE [None]
